FAERS Safety Report 9293745 (Version 4)
Quarter: 2014Q2

REPORT INFORMATION
  Report Type: Spontaneous
  Country: US (occurrence: US)
  Receive Date: 20130516
  Receipt Date: 20140530
  Transmission Date: 20141212
  Serious: No
  Sender: FDA-Public Use
  Company Number: US-009507513-1305USA009965

PATIENT
  Sex: Male
  Weight: 86.17 kg

DRUGS (1)
  1. PROPECIA [Suspect]
     Indication: ALOPECIA
     Dosage: 1 MG, QD
     Route: 048
     Dates: start: 20010115, end: 2008

REACTIONS (9)
  - Hormone level abnormal [Unknown]
  - Non-consummation [Unknown]
  - Anxiety [Unknown]
  - Loss of libido [Unknown]
  - Penis injury [Unknown]
  - Brain injury [Unknown]
  - Depression [Unknown]
  - Erectile dysfunction [Not Recovered/Not Resolved]
  - Sexual dysfunction [Not Recovered/Not Resolved]
